FAERS Safety Report 10136865 (Version 1)
Quarter: 2014Q2

REPORT INFORMATION
  Report Type: Spontaneous
  Country: US (occurrence: None)
  Receive Date: 20140428
  Receipt Date: 20140428
  Transmission Date: 20141212
  Serious: No
  Sender: FDA-Public Use
  Company Number: None

PATIENT
  Age: 53 Year
  Sex: Male
  Weight: 99.79 kg

DRUGS (2)
  1. LIDOCAINE HCL [Suspect]
     Indication: DENTAL CARIES
     Dosage: 3 CAP 1.8 ML INJECTED
     Dates: start: 20140305, end: 20140305
  2. ALBUTEROL [Concomitant]

REACTIONS (4)
  - Delayed recovery from anaesthesia [None]
  - Temporomandibular joint syndrome [None]
  - Pain [None]
  - Paraesthesia oral [None]
